FAERS Safety Report 9238706 (Version 1)
Quarter: 2013Q1

REPORT INFORMATION
  Report Type: Spontaneous
  Country: US (occurrence: None)
  Receive Date: 20121106
  Receipt Date: 20121106
  Transmission Date: 20140127
  Serious: No
  Sender: FDA-Public Use
  Company Number: 1000036958

PATIENT
  Age: 66 Year
  Sex: Male
  Weight: 78.9 kg

DRUGS (11)
  1. DALIRESP (ROFLUMILAST) (500 MICROGRAM, TABLETS) [Suspect]
     Indication: CHRONIC OBSTRUCTIVE PULMONARY DISEASE
     Route: 048
     Dates: start: 201112
  2. NORVASC (AMLODIPINE BESILATE) (AMLODIPINE BESILATE) [Concomitant]
  3. ASAMANEX (MOMETASONE FUROATE) (MOMETASONE FUROATE) [Concomitant]
  4. ATENOLOL (ATENOLOL) (ATENOLOL) [Concomitant]
  5. LIPITOR (ATORVASTATIN CALCIUM) (ATORVASTATIN CALCIUM) [Concomitant]
  6. NEXIUM (ESOMEPRAZOLE) (ESOMEPRAZOLE) [Concomitant]
  7. PLAVIX (CLOPIDOGREL BISULFATE) (CLOPIDOGREL BISULFATE) [Concomitant]
  8. PROVENTIL (ALBUTEROL) (ALBUTEROL) [Concomitant]
  9. SEREVENT (SALMETEROL XINAFOATE) (SALMETEROL XINAFOATE) [Concomitant]
  10. SPIRIVA (TIOTROPIUM BROMIDE) (TIOTROPIUM BROMIDE) [Concomitant]
  11. VERAMYST (FLUTICASONE FUROATE) (FLUTICASONE FUROATE) [Concomitant]

REACTIONS (1)
  - Weight decreased [None]
